FAERS Safety Report 8212241-6 (Version None)
Quarter: 2012Q1

REPORT INFORMATION
  Report Type: 
  Country: None (occurrence: None)
  Receive Date: 20120315
  Receipt Date: 20120309
  Transmission Date: 20120608
  Serious: Yes (Other)
  Sender: FDA-Public Use
  Company Number: GB-JNJFOC-20120105492

PATIENT
  Sex: Male

DRUGS (3)
  1. NICORETTE [Suspect]
     Indication: SMOKING CESSATION THERAPY
     Route: 048
     Dates: start: 20120108
  2. ACETAMINOPHEN [Concomitant]
     Indication: INFLUENZA LIKE ILLNESS
     Route: 065
  3. DIFFLAM [Concomitant]
     Indication: INFLUENZA LIKE ILLNESS
     Route: 065

REACTIONS (3)
  - ADVERSE DRUG REACTION [None]
  - ANGIOEDEMA [None]
  - INSOMNIA [None]
